FAERS Safety Report 25895295 (Version 1)
Quarter: 2025Q4

REPORT INFORMATION
  Report Type: Spontaneous
  Country: GB (occurrence: GB)
  Receive Date: 20251008
  Receipt Date: 20251008
  Transmission Date: 20260118
  Serious: Yes (Other)
  Sender: MERCK SHARP & DOHME LLC
  Company Number: GB-009507513-2335319

PATIENT
  Age: 75 Year
  Sex: Male

DRUGS (1)
  1. PEMBROLIZUMAB [Suspect]
     Active Substance: PEMBROLIZUMAB
     Indication: Malignant melanoma stage III
     Dosage: TIME INTERVAL: CYCLICAL: FOUR CYCLES
     Route: 065

REACTIONS (3)
  - Immune-mediated nephritis [Unknown]
  - Hypothyroidism [Unknown]
  - Dementia [Unknown]
